FAERS Safety Report 11759540 (Version 1)
Quarter: 2015Q4

REPORT INFORMATION
  Report Type: Spontaneous
  Country: US (occurrence: US)
  Receive Date: 20151120
  Receipt Date: 20151120
  Transmission Date: 20160304
  Serious: No
  Sender: FDA-Public Use
  Company Number: US-JNJFOC-20151005937

PATIENT
  Age: 66 Year
  Sex: Female
  Weight: 46.27 kg

DRUGS (2)
  1. WOMENS ROGAINE UNSCENTED [Suspect]
     Active Substance: MINOXIDIL
     Indication: DIFFUSE ALOPECIA
     Dosage: HALF A CAPFUL PLUS, 1X/DAY IN THE MORNING
     Route: 061
     Dates: start: 20151005
  2. WOMENS ROGAINE UNSCENTED [Suspect]
     Active Substance: MINOXIDIL
     Route: 061

REACTIONS (5)
  - Stress [Unknown]
  - Product use issue [Unknown]
  - Alopecia [Unknown]
  - Overdose [Unknown]
  - Weight increased [Unknown]
